FAERS Safety Report 19707175 (Version 1)
Quarter: 2021Q3

REPORT INFORMATION
  Report Type: Spontaneous
  Country: US (occurrence: US)
  Receive Date: 20210817
  Receipt Date: 20210817
  Transmission Date: 20211014
  Serious: No
  Sender: FDA-Public Use
  Company Number: NVSC2021US184521

PATIENT
  Sex: Male

DRUGS (1)
  1. PROMACTA [Suspect]
     Active Substance: ELTROMBOPAG OLAMINE
     Indication: IDIOPATHIC PULMONARY FIBROSIS
     Dosage: 50 MG, QD
     Route: 048
     Dates: start: 20210204

REACTIONS (1)
  - Platelet count decreased [Unknown]
